FAERS Safety Report 6063714-6 (Version None)
Quarter: 2009Q1

REPORT INFORMATION
  Report Type: 
  Country: None (occurrence: None)
  Receive Date: 20090130
  Receipt Date: 20090126
  Transmission Date: 20090719
  Serious: No
  Sender: FDA-Public Use
  Company Number: A0765061A

PATIENT
  Age: 48 Year
  Sex: Female

DRUGS (1)
  1. METHYLCELLULOSE POWDER REGULAR (METHYLCELLULOSE) [Suspect]
     Dosage: ORAL
     Route: 048

REACTIONS (6)
  - ABDOMINAL DISTENSION [None]
  - CHOKING SENSATION [None]
  - ERUCTATION [None]
  - GASTROOESOPHAGEAL REFLUX DISEASE [None]
  - NAUSEA [None]
  - VOMITING [None]
